FAERS Safety Report 10451799 (Version 2)
Quarter: 2016Q3

REPORT INFORMATION
  Report Type: Other
  Country: ES (occurrence: ES)
  Receive Date: 20140915
  Receipt Date: 20160907
  Transmission Date: 20161109
  Serious: Yes (Death)
  Sender: FDA-Public Use
  Company Number: ES-UNITED THERAPEUTICS-UNT-2014-007129

PATIENT
  Sex: Male

DRUGS (1)
  1. REMODULIN [Suspect]
     Active Substance: TREPROSTINIL
     Indication: PULMONARY HYPERTENSION
     Dosage: UNK
     Route: 058
     Dates: start: 20090602, end: 20140805

REACTIONS (3)
  - Generalised oedema [Fatal]
  - Right ventricular failure [Fatal]
  - Off label use [Unknown]

NARRATIVE: CASE EVENT DATE: 20090602
